FAERS Safety Report 13024406 (Version 1)
Quarter: 2016Q4

REPORT INFORMATION
  Report Type: Report from Study
  Country: None (occurrence: RO)
  Receive Date: 20161213
  Receipt Date: 20161213
  Transmission Date: 20170207
  Serious: Yes (Hospitalization)
  Sender: FDA-Public Use
  Company Number: RO-ABBVIE-16P-135-1807021-00

PATIENT
  Age: 59 Year
  Sex: Male

DRUGS (3)
  1. NEUPRO [Concomitant]
     Active Substance: ROTIGOTINE
     Indication: PARKINSON^S DISEASE
     Route: 062
     Dates: start: 2015
  2. DUODOPA [Suspect]
     Active Substance: CARBIDOPA\LEVODOPA
     Indication: PARKINSON^S DISEASE
     Dosage: 8ML/7.9ML/4.5ML(24HOURS)
     Route: 050
     Dates: start: 20160408
  3. VIREGYT [Concomitant]
     Indication: PARKINSON^S DISEASE
     Route: 048
     Dates: start: 2015

REACTIONS (8)
  - Akathisia [Recovering/Resolving]
  - Insomnia [Recovering/Resolving]
  - Hallucination, visual [Recovering/Resolving]
  - Abnormal behaviour [Recovering/Resolving]
  - Delusional perception [Recovering/Resolving]
  - Restlessness [Recovering/Resolving]
  - Hallucination, auditory [Recovering/Resolving]
  - Personality change due to a general medical condition [Recovering/Resolving]

NARRATIVE: CASE EVENT DATE: 20161121
